FAERS Safety Report 4472717-4 (Version None)
Quarter: 2004Q4

REPORT INFORMATION
  Report Type: 
  Country: None (occurrence: None)
  Receive Date: 20041012
  Receipt Date: 20041012
  Transmission Date: 20050328
  Serious: Yes (Hospitalization)
  Sender: FDA-Public Use
  Company Number: None

PATIENT
  Age: 43 Year
  Sex: Female
  Weight: 83.9154 kg

DRUGS (2)
  1. VIOXX [Suspect]
     Indication: ARTHRITIS
     Dosage: ONE  DAILY  ORAL
     Route: 048
     Dates: start: 20030101, end: 20041009
  2. VIOXX [Suspect]
     Indication: FIBROMYALGIA
     Dosage: ONE  DAILY  ORAL
     Route: 048
     Dates: start: 20030101, end: 20041009

REACTIONS (2)
  - HEART RATE IRREGULAR [None]
  - HYPERTENSION [None]
